FAERS Safety Report 24974438 (Version 1)
Quarter: 2025Q1

REPORT INFORMATION
  Report Type: Spontaneous
  Country: US (occurrence: US)
  Receive Date: 20250217
  Receipt Date: 20250217
  Transmission Date: 20250409
  Serious: No
  Sender: CSL BEHRING
  Company Number: US-BEH-2025195198

PATIENT
  Age: 65 Year
  Sex: Male

DRUGS (22)
  1. ZEMAIRA [Suspect]
     Active Substance: .ALPHA.1-PROTEINASE INHIBITOR HUMAN
     Indication: Skin cancer
     Dosage: 5988 MG, QW
     Route: 042
  2. ZEMAIRA [Suspect]
     Active Substance: .ALPHA.1-PROTEINASE INHIBITOR HUMAN
     Indication: Off label use
  3. METRONIDAZOLE [Concomitant]
     Active Substance: METRONIDAZOLE
  4. ADVAIR HFA [Concomitant]
     Active Substance: FLUTICASONE PROPIONATE\SALMETEROL XINAFOATE
  5. ALBUTEROL SULFATE [Concomitant]
     Active Substance: ALBUTEROL SULFATE
  6. AZELASTINE [Concomitant]
     Active Substance: AZELASTINE
  7. AZITHROMYCIN [Concomitant]
     Active Substance: AZITHROMYCIN
  8. CLOBETASOL [Concomitant]
     Active Substance: CLOBETASOL
  9. CYCLOBENZAPRINE [Concomitant]
     Active Substance: CYCLOBENZAPRINE
  10. DICLOFENAC [Concomitant]
     Active Substance: DICLOFENAC
  11. FEXOFENADINE [Concomitant]
     Active Substance: FEXOFENADINE HYDROCHLORIDE
  12. Fluovix [Concomitant]
  13. HYDROCHLOROTHIAZIDE [Concomitant]
     Active Substance: HYDROCHLOROTHIAZIDE
  14. HYDROCORTISONE [Concomitant]
     Active Substance: HYDROCORTISONE
  15. MONTELUKAST [Concomitant]
     Active Substance: MONTELUKAST
  16. MOTRIN IB [Concomitant]
     Active Substance: IBUPROFEN
  17. MUPIROCIN [Concomitant]
     Active Substance: MUPIROCIN
  18. NASACORT [Concomitant]
     Active Substance: TRIAMCINOLONE ACETONIDE
  19. PREDNISONE [Concomitant]
     Active Substance: PREDNISONE
  20. REFRESH CLASSIC [Concomitant]
     Active Substance: POLYVINYL ALCOHOL\POVIDONE
  21. TAMSULOSIN [Concomitant]
     Active Substance: TAMSULOSIN
  22. TRAMADOL HCL [Concomitant]
     Active Substance: TRAMADOL HYDROCHLORIDE

REACTIONS (5)
  - Condition aggravated [Unknown]
  - Oropharyngeal pain [Unknown]
  - Lung disorder [Unknown]
  - Cough [Unknown]
  - Off label use [Unknown]

NARRATIVE: CASE EVENT DATE: 20250102
